FAERS Safety Report 24960942 (Version 1)
Quarter: 2025Q1

REPORT INFORMATION
  Report Type: Spontaneous
  Country: US (occurrence: None)
  Receive Date: 20250211
  Receipt Date: 20250211
  Transmission Date: 20250409
  Serious: No
  Sender: FDA-CTU
  Company Number: None

PATIENT
  Age: 73 Year
  Sex: Female
  Weight: 56.25 kg

DRUGS (1)
  1. PAXLOVID [Suspect]
     Active Substance: NIRMATRELVIR\RITONAVIR
     Indication: COVID-19
     Dates: start: 20250202, end: 20250207

REACTIONS (3)
  - SARS-CoV-2 test positive [None]
  - Nasopharyngitis [None]
  - COVID-19 [None]

NARRATIVE: CASE EVENT DATE: 20250211
